FAERS Safety Report 9855338 (Version 1)
Quarter: 2014Q1

REPORT INFORMATION
  Report Type: Spontaneous
  Country: US (occurrence: US)
  Receive Date: 20140130
  Receipt Date: 20140130
  Transmission Date: 20141002
  Serious: Yes (Other)
  Sender: FDA-Public Use
  Company Number: US-ELI_LILLY_AND_COMPANY-US201401007886

PATIENT
  Sex: Male

DRUGS (11)
  1. EFFIENT [Suspect]
     Indication: STENT PLACEMENT
     Dosage: 10 MG, QD
  2. ASPIRIN [Concomitant]
     Dosage: 81 MG, UNK
  3. HUMALOG [Concomitant]
  4. LANTUS [Concomitant]
  5. HYDROCHLOROTHIAZIDE [Concomitant]
  6. AMLODIPINE [Concomitant]
  7. ATENOLOL [Concomitant]
  8. ATORVASTATIN [Concomitant]
  9. FENOFIBRATE [Concomitant]
  10. FISH OIL [Concomitant]
  11. CO Q-10 [Concomitant]

REACTIONS (4)
  - Device occlusion [Unknown]
  - Chest pain [Not Recovered/Not Resolved]
  - Contusion [Unknown]
  - Off label use [Not Recovered/Not Resolved]
